FAERS Safety Report 19019235 (Version 1)
Quarter: 2021Q1

REPORT INFORMATION
  Report Type: Spontaneous
  Country: US (occurrence: US)
  Receive Date: 20210317
  Receipt Date: 20210317
  Transmission Date: 20210420
  Serious: Yes (Other)
  Sender: FDA-Public Use
  Company Number: US-AMGEN-USASP2021037409

PATIENT
  Age: 53 Year
  Sex: Male

DRUGS (5)
  1. DARATUMUMAB [Suspect]
     Active Substance: DARATUMUMAB
     Indication: PLASMA CELL MYELOMA
     Dosage: UNK UNK, QMO
     Route: 042
  2. CARFILZOMIB [Suspect]
     Active Substance: CARFILZOMIB
     Indication: PLASMA CELL MYELOMA
     Dosage: 56 MILLIGRAM/SQ. METER, Q2WK
     Route: 042
  3. SIROLIMUS. [Concomitant]
     Active Substance: SIROLIMUS
     Indication: CHRONIC GRAFT VERSUS HOST DISEASE IN EYE
     Dosage: UNK, TAPERING DOSE
  4. DEXAMETHASONE. [Suspect]
     Active Substance: DEXAMETHASONE
     Indication: PLASMA CELL MYELOMA
     Dosage: 40 MILLIGRAM, QMO
     Route: 048
  5. SIROLIMUS. [Concomitant]
     Active Substance: SIROLIMUS
     Dosage: 1.5 MILLIGRAM, QD

REACTIONS (1)
  - Atypical haemolytic uraemic syndrome [Recovering/Resolving]
